FAERS Safety Report 15589713 (Version 1)
Quarter: 2018Q4

REPORT INFORMATION
  Report Type: Spontaneous
  Country: US (occurrence: US)
  Receive Date: 20181106
  Receipt Date: 20181106
  Transmission Date: 20190205
  Serious: No
  Sender: FDA-Public Use
  Company Number: US-BEH-2018096434

PATIENT
  Age: 8 Year
  Sex: Male

DRUGS (1)
  1. HIZENTRA [Suspect]
     Active Substance: HUMAN IMMUNOGLOBULIN G
     Indication: IMMUNODEFICIENCY COMMON VARIABLE
     Dosage: 3 G (15ML), QW
     Route: 058
     Dates: start: 201810

REACTIONS (2)
  - Infusion site discomfort [Unknown]
  - Infusion site pain [Unknown]

NARRATIVE: CASE EVENT DATE: 201810
